FAERS Safety Report 16573247 (Version 1)
Quarter: 2019Q3

REPORT INFORMATION
  Report Type: Spontaneous
  Country: FR (occurrence: FR)
  Receive Date: 20190715
  Receipt Date: 20190715
  Transmission Date: 20191004
  Serious: Yes (Hospitalization)
  Sender: FDA-Public Use
  Company Number: FR-009507513-1907FRA004972

PATIENT
  Age: 20 Year
  Sex: Female
  Weight: 48 kg

DRUGS (4)
  1. RISPERIDONE. [Suspect]
     Active Substance: RISPERIDONE
     Indication: SUICIDE ATTEMPT
     Dosage: DOSE: 67.5 MG
     Route: 048
     Dates: start: 20190614, end: 20190614
  2. CYAMEMAZINE [Suspect]
     Active Substance: CYAMEMAZINE
     Indication: SUICIDE ATTEMPT
     Dosage: 562 MILLIGRAM
     Route: 048
     Dates: start: 20190614, end: 20190614
  3. MIRTAZAPINE. [Suspect]
     Active Substance: MIRTAZAPINE
     Indication: SUICIDE ATTEMPT
     Dosage: DOSE: 1350 MG
     Route: 048
     Dates: start: 20190614, end: 20190614
  4. LORAZEPAM. [Suspect]
     Active Substance: LORAZEPAM
     Indication: SUICIDE ATTEMPT
     Dosage: 45 MILLIGRAM
     Route: 048
     Dates: start: 20190614, end: 20190614

REACTIONS (5)
  - Tachycardia [Recovered/Resolved]
  - Neurological decompensation [Recovered/Resolved]
  - Dysarthria [Recovered/Resolved]
  - Coma [Recovered/Resolved]
  - Tachypnoea [Recovered/Resolved]

NARRATIVE: CASE EVENT DATE: 20190614
